FAERS Safety Report 23762055 (Version 1)
Quarter: 2024Q2

REPORT INFORMATION
  Report Type: Other
  Country: US (occurrence: JP)
  Receive Date: 20240419
  Receipt Date: 20240419
  Transmission Date: 20240715
  Serious: Yes (Hospitalization, Other)
  Sender: FDA-Public Use
  Company Number: JP-Saptalis Pharmaceuticals LLC-2155775

PATIENT
  Age: 62 Year
  Sex: Female

DRUGS (2)
  1. LIKMEZ [Suspect]
     Active Substance: METRONIDAZOLE
     Indication: Liver abscess
     Route: 065
  2. CEFTRIAXONE [Concomitant]
     Active Substance: CEFTRIAXONE\CEFTRIAXONE SODIUM

REACTIONS (2)
  - Toxic encephalopathy [Recovered/Resolved]
  - Product use issue [Recovered/Resolved]
